FAERS Safety Report 8925421 (Version 1)
Quarter: 2012Q4

REPORT INFORMATION
  Report Type: 
  Country: AU (occurrence: AU)
  Receive Date: 20121126
  Receipt Date: 20121126
  Transmission Date: 20130627
  Serious: Yes (Other)
  Sender: FDA-Public Use
  Company Number: PHHY2012AU107424

PATIENT
  Sex: Female

DRUGS (2)
  1. ACLASTA [Suspect]
     Dosage: 5 mg, UNK
     Route: 042
     Dates: start: 20100811
  2. ACLASTA [Suspect]
     Dosage: 5 mg, UNK
     Route: 042
     Dates: start: 20111006

REACTIONS (1)
  - Eye infection [Unknown]
